FAERS Safety Report 5618973-8 (Version None)
Quarter: 2008Q1

REPORT INFORMATION
  Report Type: 
  Country: None (occurrence: None)
  Receive Date: 20080207
  Receipt Date: 20080129
  Transmission Date: 20080703
  Serious: Yes (Death, Other)
  Sender: FDA-Public Use
  Company Number: AU-PFIZER INC-2007106975

PATIENT
  Age: 81 Year
  Sex: Female

DRUGS (2)
  1. SUTENT [Suspect]
     Indication: RENAL CELL CARCINOMA
     Dates: start: 20071101, end: 20071205
  2. CARDIZEM [Concomitant]

REACTIONS (4)
  - DISEASE PROGRESSION [None]
  - PLEURAL EFFUSION [None]
  - RENAL CELL CARCINOMA [None]
  - URINARY TRACT INFECTION [None]
